FAERS Safety Report 7017980-0 (Version None)
Quarter: 2010Q3

REPORT INFORMATION
  Report Type: 
  Country: None (occurrence: None)
  Receive Date: 20100928
  Receipt Date: 20100917
  Transmission Date: 20110219
  Serious: Yes (Hospitalization)
  Sender: FDA-Public Use
  Company Number: GB-B.I. PHARMACEUTICALS,INC./RIDGEFIELD-2010-BP-10844YA

PATIENT
  Age: 52 Year
  Sex: Male

DRUGS (6)
  1. TAMSULOSIN HCL [Suspect]
     Indication: PROSTATOMEGALY
     Dosage: 400 MCG
     Route: 048
     Dates: start: 20100712, end: 20100831
  2. TAMSULOSIN HCL [Suspect]
     Indication: URINARY TRACT INFECTION
  3. CANDESARTAN CILEXETIL [Concomitant]
  4. DOXAZOSIN MESYLATE [Concomitant]
  5. LANSOPRAZOLE [Concomitant]
  6. MOXONIDINE (MOXONIDINE) [Concomitant]

REACTIONS (4)
  - GINGIVAL BLEEDING [None]
  - IDIOPATHIC THROMBOCYTOPENIC PURPURA [None]
  - PLATELET COUNT DECREASED [None]
  - RASH [None]
